FAERS Safety Report 14128017 (Version 1)
Quarter: 2017Q4

REPORT INFORMATION
  Report Type: Spontaneous
  Country: GB (occurrence: GB)
  Receive Date: 20171026
  Receipt Date: 20171026
  Transmission Date: 20180321
  Serious: Yes (Other)
  Sender: FDA-Public Use
  Company Number: GB-ASPEN PHARMA TRADING LIMITED US-AS-2017-007491

PATIENT
  Sex: Male

DRUGS (2)
  1. BUSULFAN 2 MG TABLET [Suspect]
     Active Substance: BUSULFAN
     Dosage: REPORTEDLY, PATIENT WAS WAS ON THIS FREQUENCY OF THE DRUG 4 YEARS BEFORE REPORTING AND HE WAS TAKING
     Route: 048
  2. BUSULFAN 2 MG TABLET [Suspect]
     Active Substance: BUSULFAN
     Indication: THROMBOCYTOSIS
     Dosage: THIS DOSE REGIMEN WAS NOT STARTED YET AT THE TIME OF REPORT
     Route: 048

REACTIONS (3)
  - Cerebrovascular accident [Unknown]
  - Prescribed overdose [Unknown]
  - Platelet count increased [Not Recovered/Not Resolved]

NARRATIVE: CASE EVENT DATE: 201707
